FAERS Safety Report 7236175-9 (Version None)
Quarter: 2011Q1

REPORT INFORMATION
  Report Type: 
  Country: None (occurrence: None)
  Receive Date: 20110111
  Receipt Date: 20110105
  Transmission Date: 20110831
  Serious: Yes (Other)
  Sender: FDA-Public Use
  Company Number: DSA_44624_2011

PATIENT
  Age: 43 Year
  Sex: Female
  Weight: 43.0917 kg

DRUGS (1)
  1. ATIVAN [Suspect]
     Indication: PRODUCT USED FOR UNKNOWN INDICATION
     Dosage: DF
     Dates: start: 20100101

REACTIONS (2)
  - AMNESIA [None]
  - WEIGHT DECREASED [None]
